FAERS Safety Report 24753837 (Version 2)
Quarter: 2025Q3

REPORT INFORMATION
  Report Type: Spontaneous
  Country: EU (occurrence: EU)
  Receive Date: 20241219
  Receipt Date: 20250809
  Transmission Date: 20251021
  Serious: Yes (Other)
  Sender: ALEXION PHARMACEUTICALS
  Company Number: EU-AstraZeneca-CH-00766162A

PATIENT
  Age: 79 Year
  Sex: Female

DRUGS (1)
  1. DURVALUMAB [Suspect]
     Active Substance: DURVALUMAB
     Indication: Non-small cell lung cancer
     Dosage: 1500 MILLIGRAM, Q4W

REACTIONS (3)
  - Neuropathy peripheral [Not Recovered/Not Resolved]
  - Malignant neoplasm progression [Unknown]
  - Cough [Unknown]
